FAERS Safety Report 4363712-4 (Version None)
Quarter: 2004Q2

REPORT INFORMATION
  Report Type: 
  Country: None (occurrence: None)
  Receive Date: 20040524
  Receipt Date: 20040512
  Transmission Date: 20050107
  Serious: Yes (Death)
  Sender: FDA-Public Use
  Company Number: US-ROCHE-367667

PATIENT
  Age: 42 Year
  Sex: Male

DRUGS (10)
  1. VALIUM [Suspect]
     Indication: DRUG USE FOR UNKNOWN INDICATION
     Route: 048
  2. COCAINE [Suspect]
     Indication: DRUG USE FOR UNKNOWN INDICATION
     Route: 048
  3. METHADONE HCL [Suspect]
     Indication: DRUG USE FOR UNKNOWN INDICATION
     Route: 048
  4. ETHANOL [Suspect]
     Indication: DRUG USE FOR UNKNOWN INDICATION
     Route: 048
  5. ALCOHOL [Concomitant]
  6. UNSPECIFIED DRUG [Concomitant]
  7. CEPHALEXIN [Concomitant]
     Dosage: MEDICATION WAS PRESCRIBED BUT IT IS NOT KNOWN WHETHER THE PATIENT TOOK THE DRUG.
  8. CYCLOBENZAPRINE [Concomitant]
     Dosage: MEDICATION WAS PRESCRIBED BUT IT IS UNKNOWN WHETHER THE PATIENT WAS TAKING THE DRUG.
  9. CLARITIN [Concomitant]
     Dosage: MEDICATION WAS PRESCRIBED BUT IT IS UNKNOWN WHETHER THE PATIENT WAS TAKING THE DRUG.
  10. PREVACID [Concomitant]
     Dosage: MEDICATION WAS PRESCRIBED BUT IT IS UNKNOWN WHETHER THE PATIENT WAS TAKING THE DRUG.

REACTIONS (2)
  - ACCIDENT [None]
  - DRUG TOXICITY [None]
